FAERS Safety Report 9720428 (Version 1)
Quarter: 2013Q4

REPORT INFORMATION
  Report Type: Report from Study
  Country: FR (occurrence: FR)
  Receive Date: 20131129
  Receipt Date: 20131129
  Transmission Date: 20140711
  Serious: Yes (Other)
  Sender: FDA-Public Use
  Company Number: FR-ROCHE-1311357

PATIENT
  Sex: 0

DRUGS (12)
  1. RITUXIMAB [Suspect]
     Indication: RHEUMATOID ARTHRITIS
     Route: 065
  2. TOCILIZUMAB [Suspect]
     Indication: RHEUMATOID ARTHRITIS
     Route: 065
  3. MYCOPHENOLATE MOFETIL [Suspect]
     Indication: RHEUMATOID ARTHRITIS
     Route: 065
  4. METHOTREXATE [Suspect]
     Indication: RHEUMATOID ARTHRITIS
     Route: 065
  5. ETANERCEPT [Suspect]
     Indication: RHEUMATOID ARTHRITIS
     Route: 065
  6. INFLIXIMAB [Suspect]
     Indication: ANKYLOSING SPONDYLITIS
     Route: 065
  7. ADALIMUMAB [Suspect]
     Indication: RHEUMATOID ARTHRITIS
     Route: 065
  8. CYCLOPHOSPHAMIDE [Suspect]
     Indication: RHEUMATOID ARTHRITIS
     Route: 065
  9. AZATHIOPRINE [Suspect]
     Indication: RHEUMATOID ARTHRITIS
     Route: 065
  10. SULFASALAZINE [Suspect]
     Indication: RHEUMATOID ARTHRITIS
     Route: 065
  11. LEFLUNOMIDE [Suspect]
     Indication: RHEUMATOID ARTHRITIS
     Route: 065
  12. ABATACEPT [Suspect]
     Indication: RHEUMATOID ARTHRITIS
     Route: 065

REACTIONS (1)
  - Hepatitis B [Unknown]
